FAERS Safety Report 7387245-6 (Version None)
Quarter: 2011Q1

REPORT INFORMATION
  Report Type: 
  Country: None (occurrence: None)
  Receive Date: 20110331
  Receipt Date: 20110328
  Transmission Date: 20110831
  Serious: Yes (Hospitalization)
  Sender: FDA-Public Use
  Company Number: IT-PFIZER INC-2011057658

PATIENT
  Age: 55 Year
  Sex: Male

DRUGS (2)
  1. SUTENT [Suspect]
     Indication: RENAL CANCER
     Dosage: 50 MG, 1X/DAY
     Dates: start: 20101130, end: 20110203
  2. ZOLEDRONIC ACID [Concomitant]
     Dosage: 4 MG, UNK
     Dates: start: 20101124, end: 20110125

REACTIONS (6)
  - PURPURA [None]
  - DIARRHOEA [None]
  - DEHYDRATION [None]
  - EPISTAXIS [None]
  - THROMBOCYTOPENIA [None]
  - ANAEMIA [None]
